FAERS Safety Report 9192835 (Version 1)
Quarter: 2013Q1

REPORT INFORMATION
  Report Type: Spontaneous
  Country: IT (occurrence: IT)
  Receive Date: 20130327
  Receipt Date: 20130327
  Transmission Date: 20140127
  Serious: Yes (Hospitalization, Other)
  Sender: FDA-Public Use
  Company Number: IT-PFIZER INC-2013095506

PATIENT
  Age: 38 Year
  Sex: Female

DRUGS (2)
  1. EFEXOR ER [Suspect]
     Indication: POSTPARTUM DEPRESSION
     Dosage: 600 MG, SINGLE
     Route: 048
     Dates: start: 20130316, end: 20130316
  2. DEPAKIN [Concomitant]
     Dosage: 500 MG, UNK
     Route: 065
     Dates: start: 20120901, end: 20130316

REACTIONS (3)
  - Incorrect dose administered [Unknown]
  - Somnolence [Recovered/Resolved]
  - Drug abuse [Unknown]
